FAERS Safety Report 14460682 (Version 1)
Quarter: 2018Q1

REPORT INFORMATION
  Report Type: Spontaneous
  Country: US (occurrence: US)
  Receive Date: 20180130
  Receipt Date: 20180130
  Transmission Date: 20180509
  Serious: Yes (Other)
  Sender: FDA-Public Use
  Company Number: None

PATIENT
  Age: 12 Year
  Sex: Male
  Weight: 61.2 kg

DRUGS (3)
  1. OSELTAMIVIR 75 MG CAPSULES ALVOGEN [Suspect]
     Active Substance: OSELTAMIVIR
     Indication: INFLUENZA
     Dosage: ?          QUANTITY:1 CAPSULE(S);?
     Route: 048
     Dates: start: 20180127, end: 20180130
  2. MULTIVITAMINS [Concomitant]
     Active Substance: VITAMINS
  3. ZYERTEC [Concomitant]

REACTIONS (4)
  - Loss of consciousness [None]
  - Rash pruritic [None]
  - Rash [None]
  - Mental status changes [None]

NARRATIVE: CASE EVENT DATE: 20180127
